FAERS Safety Report 5892126-0 (Version None)
Quarter: 2008Q3

REPORT INFORMATION
  Report Type: 
  Country: None (occurrence: None)
  Receive Date: 20080922
  Receipt Date: 20080912
  Transmission Date: 20090109
  Serious: Yes (Hospitalization)
  Sender: FDA-Public Use
  Company Number: IT-PFIZER INC-2008077632

PATIENT
  Sex: Female

DRUGS (1)
  1. SULFASALAZINE [Suspect]

REACTIONS (3)
  - ERYTHEMA [None]
  - LEUKOPENIA [None]
  - PYREXIA [None]
